FAERS Safety Report 4283771-7 (Version None)
Quarter: 2004Q1

REPORT INFORMATION
  Report Type: 
  Country: None (occurrence: None)
  Receive Date: 20040130
  Receipt Date: 20040130
  Transmission Date: 20041129
  Serious: Yes (Hospitalization)
  Sender: FDA-Public Use
  Company Number: None

PATIENT
  Age: 63 Year
  Sex: Male
  Weight: 83 kg

DRUGS (2)
  1. HEPARIN [Suspect]
     Indication: CHEST PAIN
     Dosage: IV
     Route: 042
     Dates: start: 20030930, end: 20031002
  2. ASPIRIN [Suspect]
     Dosage: 325 MG QD ORAL
     Route: 048

REACTIONS (2)
  - HAEMATEMESIS [None]
  - OESOPHAGITIS [None]
